FAERS Safety Report 7403007-5 (Version None)
Quarter: 2011Q2

REPORT INFORMATION
  Report Type: 
  Country: None (occurrence: None)
  Receive Date: 20110408
  Receipt Date: 20110329
  Transmission Date: 20111010
  Serious: Yes (Hospitalization)
  Sender: FDA-Public Use
  Company Number: GB-ELI_LILLY_AND_COMPANY-GB200910006325

PATIENT
  Sex: Female

DRUGS (14)
  1. GLICAZIDA [Concomitant]
     Indication: DIABETES MELLITUS
     Dates: start: 20070101
  2. FLUCONAZOLE [Concomitant]
     Indication: ORAL CANDIDIASIS
     Dosage: 100 MG, DAILY (1/D)
     Dates: start: 20091010
  3. ATROVENT [Concomitant]
     Indication: DYSPNOEA
     Dates: start: 20090101
  4. MONTELUKAST [Concomitant]
     Indication: ASTHMA
     Dates: start: 20030101
  5. FOLIC ACID [Concomitant]
     Indication: PROPHYLAXIS
     Dates: start: 20090903
  6. BETNOVATE /00008501/ [Concomitant]
     Indication: DRY SKIN
     Dates: start: 20091013
  7. PEMETREXED [Suspect]
     Indication: CHEMOTHERAPY
     Dosage: 750 MG, UNKNOWN
     Dates: start: 20090911
  8. VENTOLIN [Concomitant]
     Indication: DYSPNOEA
     Dates: start: 20090101
  9. ONDANSETRON [Concomitant]
     Indication: NAUSEA
     Dates: start: 20091013
  10. DEXAMETHASONE [Concomitant]
     Indication: PROPHYLAXIS
     Dates: start: 20091001
  11. METFORMIN [Concomitant]
     Indication: DIABETES MELLITUS
     Dates: start: 20040101
  12. PRAVASTATIN [Concomitant]
     Indication: BLOOD CHOLESTEROL INCREASED
     Dates: start: 20040101
  13. PARACETAMOL [Concomitant]
     Indication: PAIN
     Dosage: UNK, AS NEEDED
     Dates: start: 20080101
  14. VIT B12 [Concomitant]
     Indication: PROPHYLAXIS
     Dates: start: 20090903

REACTIONS (9)
  - BLOOD POTASSIUM DECREASED [None]
  - VOMITING [None]
  - HYPERTENSION [None]
  - NEUTROPHIL COUNT DECREASED [None]
  - DIARRHOEA [None]
  - ATRIAL FIBRILLATION [None]
  - PERICARDIAL EFFUSION [None]
  - FAECES DISCOLOURED [None]
  - BLOOD MAGNESIUM DECREASED [None]
